FAERS Safety Report 10016249 (Version 1)
Quarter: 2014Q1

REPORT INFORMATION
  Report Type: Spontaneous
  Country: GB (occurrence: GB)
  Receive Date: 20140317
  Receipt Date: 20140317
  Transmission Date: 20141002
  Serious: Yes (Disabling)
  Sender: FDA-Public Use
  Company Number: GB-WATSON-2014-04572

PATIENT
  Age: 92 Year
  Sex: Female
  Weight: 44 kg

DRUGS (4)
  1. PREDNISOLONE [Suspect]
     Indication: INFLAMMATORY BOWEL DISEASE
     Dosage: 30 MG, DAILY (6 X 5MG TABLETS ONCE A DAY)
     Route: 048
     Dates: start: 20140216, end: 20140218
  2. ACUPAN [Concomitant]
     Indication: PRODUCT USED FOR UNKNOWN INDICATION
     Dosage: UNK
     Route: 065
  3. PIROXICAM [Concomitant]
     Indication: PRODUCT USED FOR UNKNOWN INDICATION
     Dosage: UNK
     Route: 065
  4. SALAMOL                            /00139502/ [Concomitant]
     Indication: PRODUCT USED FOR UNKNOWN INDICATION
     Dosage: UNK
     Route: 065

REACTIONS (3)
  - Hallucinations, mixed [Not Recovered/Not Resolved]
  - Confusional state [Not Recovered/Not Resolved]
  - Disorientation [Not Recovered/Not Resolved]
